FAERS Safety Report 24915012 (Version 2)
Quarter: 2025Q1

REPORT INFORMATION
  Report Type: Spontaneous
  Country: US (occurrence: US)
  Receive Date: 20250203
  Receipt Date: 20250213
  Transmission Date: 20250408
  Serious: Yes (Life-Threatening, Hospitalization)
  Sender: TEVA
  Company Number: US-TEVA-VS-3292504

PATIENT
  Sex: Male

DRUGS (6)
  1. FLUCONAZOLE [Suspect]
     Active Substance: FLUCONAZOLE
     Indication: Acanthamoeba infection
     Route: 065
  2. MOMETASONE [Concomitant]
     Active Substance: MOMETASONE
     Indication: Chronic rhinosinusitis with nasal polyps
     Route: 065
     Dates: start: 202009
  3. SULFADIAZINE [Suspect]
     Active Substance: SULFADIAZINE
     Indication: Acanthamoeba infection
     Route: 065
  4. MILTEFOSINE [Suspect]
     Active Substance: MILTEFOSINE
     Indication: Acanthamoeba infection
     Route: 065
  5. PENTAMIDINE [Suspect]
     Active Substance: PENTAMIDINE
     Indication: Acanthamoeba infection
     Route: 065
  6. FLUCYTOSINE [Suspect]
     Active Substance: FLUCYTOSINE
     Indication: Acanthamoeba infection
     Route: 065

REACTIONS (1)
  - Drug ineffective [Unknown]
